FAERS Safety Report 5061082-X (Version None)
Quarter: 2006Q3

REPORT INFORMATION
  Report Type: 
  Country: None (occurrence: None)
  Receive Date: 20060719
  Receipt Date: 20060719
  Transmission Date: 20061208
  Serious: No
  Sender: FDA-Public Use
  Company Number: None

PATIENT
  Age: 68 Year
  Sex: Male
  Weight: 107.9561 kg

DRUGS (6)
  1. CLOPIDOGREL [Suspect]
     Dosage: 75MG DAILY PO
     Route: 048
  2. FELODIPINE [Concomitant]
  3. FE GLUC [Concomitant]
  4. OMEPRAZOLE [Concomitant]
  5. SIMVASTATIN [Concomitant]
  6. SPIRONOLACTONE [Concomitant]

REACTIONS (2)
  - COLONOSCOPY ABNORMAL [None]
  - GASTRIC ULCER [None]
